FAERS Safety Report 7422867-5 (Version None)
Quarter: 2011Q2

REPORT INFORMATION
  Report Type: 
  Country: None (occurrence: None)
  Receive Date: 20110419
  Receipt Date: 20110405
  Transmission Date: 20111010
  Serious: Yes (Hospitalization, Other)
  Sender: FDA-Public Use
  Company Number: CA-JNJFOC-20110202768

PATIENT
  Sex: Female
  Weight: 77.3 kg

DRUGS (7)
  1. REMICADE [Suspect]
     Indication: CROHN'S DISEASE
     Dosage: 19 INFUSIONS ON UNSPECIFIED DATES
     Route: 042
  2. IMURAN [Concomitant]
  3. BRICANYL [Concomitant]
     Indication: PRODUCT USED FOR UNKNOWN INDICATION
     Route: 065
  4. FLONASE [Concomitant]
  5. FLOVENT [Concomitant]
  6. EFFEXOR [Concomitant]
  7. REACTINE [Concomitant]

REACTIONS (3)
  - ABORTION SPONTANEOUS [None]
  - TRACHEITIS [None]
  - DRUG EXPOSURE DURING PREGNANCY [None]
